FAERS Safety Report 7784692-5 (Version None)
Quarter: 2011Q3

REPORT INFORMATION
  Report Type: 
  Country: None (occurrence: None)
  Receive Date: 20110928
  Receipt Date: 20110622
  Transmission Date: 20111222
  Serious: No
  Sender: FDA-Public Use
  Company Number: US-BAYER-2011-055344

PATIENT
  Sex: Male

DRUGS (2)
  1. ALEVE (CAPLET) [Suspect]
     Indication: PRODUCT USED FOR UNKNOWN INDICATION
     Dosage: 2 U, BID
     Route: 048
     Dates: start: 20110620, end: 20110620
  2. UNKNOWN [Concomitant]

REACTIONS (2)
  - NAUSEA [None]
  - VOMITING [None]
